FAERS Safety Report 8604766-6 (Version None)
Quarter: 2012Q3

REPORT INFORMATION
  Report Type: 
  Country: None (occurrence: None)
  Receive Date: 20120820
  Receipt Date: 20120813
  Transmission Date: 20120928
  Serious: No
  Sender: FDA-Public Use
  Company Number: US-PFIZER INC-2012198564

PATIENT
  Age: 48 Year
  Sex: Female
  Weight: 147 kg

DRUGS (17)
  1. MELATONIN [Concomitant]
     Dosage: 5 MG, DAILY
  2. LASIX [Suspect]
     Dosage: UNK
     Dates: end: 20120801
  3. AMLODIPINE [Concomitant]
     Indication: HYPERTENSION
     Dosage: 5 MG, DAILY
  4. TIKOSYN [Suspect]
     Indication: ATRIAL FIBRILLATION
     Dosage: 0.5 MG, 2X/DAY
     Dates: start: 20090901
  5. GABAPENTIN [Concomitant]
     Indication: NEUROPATHY PERIPHERAL
     Dosage: 100 MG, 3X/DAY
  6. VITAMIN D [Concomitant]
     Dosage: 2000 MG, DAILY
  7. HUMULIN R [Concomitant]
     Indication: TYPE 2 DIABETES MELLITUS
     Dosage: UNK
  8. EDARBI [Concomitant]
     Dosage: 80 MG, DAILY
  9. SPIRIVA [Concomitant]
     Indication: ASTHMA
     Dosage: 1 MG, DAILY
  10. HUMULIN N [Concomitant]
     Indication: TYPE 2 DIABETES MELLITUS
     Dosage: 100 MG, 2X/DAY
  11. FORMOTEROL FUMARATE [Concomitant]
     Indication: ASTHMA
     Dosage: TWO PUFFS, DAILY
  12. WARFARIN SODIUM [Concomitant]
     Indication: ATRIAL FIBRILLATION
     Dosage: 5 MG, DAILY
  13. LIPITOR [Concomitant]
     Dosage: 40 MG, DAILY
  14. MAGNESIUM OXIDE [Concomitant]
     Dosage: 400 MG, 2X/DAY
  15. LISINOPRIL [Suspect]
     Dosage: UNK
     Dates: end: 20120801
  16. POTASSIUM CHLORIDE [Suspect]
     Dosage: UNK
     Dates: end: 20120801
  17. ACETYLSALICYLIC ACID [Concomitant]
     Dosage: UNK DAILY

REACTIONS (4)
  - BLOOD POTASSIUM INCREASED [None]
  - VITAMIN B1 INCREASED [None]
  - BLOOD CREATININE INCREASED [None]
  - GLOMERULAR FILTRATION RATE DECREASED [None]
